FAERS Safety Report 8006299-7 (Version None)
Quarter: 2011Q4

REPORT INFORMATION
  Report Type: 
  Country: None (occurrence: None)
  Receive Date: 20111226
  Receipt Date: 20111220
  Transmission Date: 20120403
  Serious: Yes (Life-Threatening)
  Sender: FDA-Public Use
  Company Number: PHHY2011DE111196

PATIENT
  Age: 15 Year
  Sex: Male
  Weight: 62 kg

DRUGS (3)
  1. FUROSEMIDE [Concomitant]
     Indication: OLIGURIA
     Dosage: 60 MG
     Dates: start: 20110730
  2. SANDIMMUNE [Suspect]
     Indication: FOCAL SEGMENTAL GLOMERULOSCLEROSIS
     Dosage: 175 MG BID
     Route: 048
     Dates: start: 20110730, end: 20110730
  3. PREDNISOLONE [Concomitant]
     Indication: FOCAL SEGMENTAL GLOMERULOSCLEROSIS
     Dosage: 75 MG
     Dates: start: 20110730

REACTIONS (9)
  - PYREXIA [None]
  - HYPERTENSION [None]
  - HEADACHE [None]
  - OLIGURIA [None]
  - C-REACTIVE PROTEIN INCREASED [None]
  - PAIN IN EXTREMITY [None]
  - WHITE BLOOD CELL COUNT INCREASED [None]
  - GASTROINTESTINAL PAIN [None]
  - WEIGHT INCREASED [None]
